FAERS Safety Report 25961435 (Version 1)
Quarter: 2025Q4

REPORT INFORMATION
  Report Type: Spontaneous
  Country: US (occurrence: US)
  Receive Date: 20251027
  Receipt Date: 20251027
  Transmission Date: 20260118
  Serious: No
  Sender: AUROBINDO
  Company Number: US-AUROBINDO-AUR-APL-2025-015554

PATIENT
  Age: 83 Year
  Sex: Female
  Weight: 167.6 kg

DRUGS (1)
  1. ESCITALOPRAM OXALATE [Suspect]
     Active Substance: ESCITALOPRAM OXALATE
     Indication: Depression
     Dosage: ONCE A NIGHT
     Route: 065

REACTIONS (3)
  - Pelvic pain [Unknown]
  - Fatigue [Unknown]
  - Renal pain [Unknown]
